FAERS Safety Report 5688184-9 (Version None)
Quarter: 2008Q1

REPORT INFORMATION
  Report Type: 
  Country: None (occurrence: None)
  Receive Date: 20080327
  Receipt Date: 20080314
  Transmission Date: 20080703
  Serious: Yes (Hospitalization)
  Sender: FDA-Public Use
  Company Number: 2008000598

PATIENT
  Age: 54 Year
  Sex: Female

DRUGS (2)
  1. ERLOTINIB (ERLOTINIB HCL) (TABLET) (ERLOTINIB HCL) [Suspect]
     Indication: OVARIAN CANCER
     Dosage: (150 MG, QD), ORAL : (150 MG, QD), ORAL
     Route: 048
     Dates: start: 20070620, end: 20070723
  2. ERLOTINIB (ERLOTINIB HCL) (TABLET) (ERLOTINIB HCL) [Suspect]
     Indication: OVARIAN CANCER
     Dosage: (150 MG, QD), ORAL : (150 MG, QD), ORAL
     Route: 048
     Dates: start: 20070806

REACTIONS (1)
  - ANAEMIA [None]
